FAERS Safety Report 7253120-0 (Version None)
Quarter: 2011Q1

REPORT INFORMATION
  Report Type: 
  Country: None (occurrence: None)
  Receive Date: 20110129
  Receipt Date: 20100211
  Transmission Date: 20110831
  Serious: No
  Sender: FDA-Public Use
  Company Number: US-ABBOTT-10P-163-0625717-00

PATIENT
  Sex: Male
  Weight: 57.658 kg

DRUGS (3)
  1. HUMIRA [Suspect]
     Indication: CROHN'S DISEASE
     Dosage: DAY 1
     Dates: start: 20100129
  2. HUMIRA [Suspect]
     Indication: JUVENILE ARTHRITIS
  3. NEXIUM [Concomitant]
     Indication: PRODUCT USED FOR UNKNOWN INDICATION

REACTIONS (7)
  - UPPER RESPIRATORY TRACT INFECTION [None]
  - PHARYNGITIS [None]
  - NASAL CONGESTION [None]
  - INCREASED UPPER AIRWAY SECRETION [None]
  - COUGH [None]
  - CONJUNCTIVITIS INFECTIVE [None]
  - NASOPHARYNGITIS [None]
